FAERS Safety Report 24562495 (Version 1)
Quarter: 2024Q4

REPORT INFORMATION
  Report Type: Spontaneous
  Country: NO (occurrence: NO)
  Receive Date: 20241029
  Receipt Date: 20241029
  Transmission Date: 20250114
  Serious: Yes (Hospitalization, Other)
  Sender: NOVARTIS
  Company Number: NO-002147023-NVSC2024NO208735

PATIENT
  Age: 53 Year
  Sex: Female

DRUGS (5)
  1. MEKINIST [Suspect]
     Active Substance: TRAMETINIB DIMETHYL SULFOXIDE
     Indication: Product used for unknown indication
     Dosage: UNK
     Route: 065
     Dates: start: 20220211, end: 202309
  2. TAFINLAR [Suspect]
     Active Substance: DABRAFENIB MESYLATE
     Indication: Product used for unknown indication
     Dosage: UNK
     Route: 065
     Dates: start: 20221214
  3. PEMBROLIZUMAB [Concomitant]
     Active Substance: PEMBROLIZUMAB
     Indication: Product used for unknown indication
     Dosage: UNK
     Route: 065
  4. LENVATINIB [Concomitant]
     Active Substance: LENVATINIB
     Indication: Product used for unknown indication
     Dosage: UNK
     Route: 065
  5. KEYTRUDA [Concomitant]
     Active Substance: PEMBROLIZUMAB
     Indication: Product used for unknown indication
     Dosage: UNK
     Route: 065

REACTIONS (13)
  - Aphasia [Recovered/Resolved]
  - Metastases to lung [Recovered/Resolved]
  - Metastases to central nervous system [Unknown]
  - Pleural thickening [Unknown]
  - Hepatic enzyme increased [Recovering/Resolving]
  - Oedema peripheral [Unknown]
  - Hepatitis [Recovering/Resolving]
  - Aphasia [Unknown]
  - Muscular weakness [Unknown]
  - Metastasis [Unknown]
  - Metastases to lung [Unknown]
  - Tibia fracture [Unknown]
  - Metastases to meninges [Unknown]

NARRATIVE: CASE EVENT DATE: 20230101
